FAERS Safety Report 14611138 (Version 1)
Quarter: 2018Q1

REPORT INFORMATION
  Report Type: Spontaneous
  Country: AU (occurrence: AU)
  Receive Date: 20180308
  Receipt Date: 20180308
  Transmission Date: 20180509
  Serious: Yes (Other)
  Sender: FDA-Public Use
  Company Number: AU-CONCORDIA PHARMACEUTICALS INC.-GSH201803-000920

PATIENT
  Age: 57 Year
  Sex: Female

DRUGS (3)
  1. TACROLIMUS. [Suspect]
     Active Substance: TACROLIMUS
  2. PREDNISOLONE. [Suspect]
     Active Substance: PREDNISOLONE
  3. MYCOPHENOLIC ACID. [Suspect]
     Active Substance: MYCOPHENOLIC ACID

REACTIONS (5)
  - Aplastic anaemia [Unknown]
  - Sepsis [Unknown]
  - Bone marrow failure [Unknown]
  - Bronchopulmonary aspergillosis [Unknown]
  - Blindness [Unknown]
